FAERS Safety Report 7619018-0 (Version None)
Quarter: 2011Q3

REPORT INFORMATION
  Report Type: 
  Country: None (occurrence: None)
  Receive Date: 20110718
  Receipt Date: 20110712
  Transmission Date: 20111222
  Serious: Yes (Life-Threatening)
  Sender: FDA-Public Use
  Company Number: CN-ASTRAZENECA-2011SE40648

PATIENT
  Age: 9 Year
  Sex: Male

DRUGS (3)
  1. VALIUM [Concomitant]
     Route: 030
  2. LIDOCAINE [Suspect]
     Indication: EPIDURAL ANAESTHESIA
     Route: 042
  3. ATROPINE [Concomitant]
     Route: 030

REACTIONS (9)
  - MUSCLE SPASMS [None]
  - HEART RATE DECREASED [None]
  - GAZE PALSY [None]
  - BLOOD PRESSURE DECREASED [None]
  - LARYNGOSPASM [None]
  - OXYGEN SATURATION DECREASED [None]
  - CARDIO-RESPIRATORY ARREST [None]
  - DYSPNOEA [None]
  - CYANOSIS [None]
